FAERS Safety Report 12683977 (Version 1)
Quarter: 2016Q3

REPORT INFORMATION
  Report Type: Spontaneous
  Country: FR (occurrence: FR)
  Receive Date: 20160825
  Receipt Date: 20160825
  Transmission Date: 20161109
  Serious: Yes (Hospitalization)
  Sender: FDA-Public Use
  Company Number: FR-PFIZER INC-2016389747

PATIENT
  Age: 48 Year
  Sex: Male

DRUGS (7)
  1. INSULIN [Suspect]
     Active Substance: INSULIN NOS
     Dosage: UNK
     Route: 058
  2. ZOLPIDEM [Suspect]
     Active Substance: ZOLPIDEM\ZOLPIDEM TARTRATE
     Dosage: UNK
  3. TAHOR [Suspect]
     Active Substance: ATORVASTATIN CALCIUM
     Dosage: 40 MG, DAILY
     Route: 048
  4. TAHOR [Suspect]
     Active Substance: ATORVASTATIN CALCIUM
     Dosage: UNK, AT UNUSUAL DOSE
     Route: 048
     Dates: start: 20160720
  5. INSULIN [Suspect]
     Active Substance: INSULIN NOS
     Dosage: UNK, 4 TIMES THE USUAL DOSE OF RAPID-ACTING INSULIN WITH ONE DOSE OF LONG-ACTING INSULIN
     Route: 058
     Dates: start: 20160720
  6. KARDEGIC [Concomitant]
     Active Substance: ASPIRIN LYSINE
     Dosage: 75 MG, DAILY
  7. BISOPROLOL [Concomitant]
     Active Substance: BISOPROLOL
     Dosage: 2.5 MG, 2X/DAY

REACTIONS (10)
  - Intentional product misuse [Unknown]
  - Hypoglycaemic coma [Recovered/Resolved]
  - Heart rate increased [Unknown]
  - Hypokalaemia [Recovered/Resolved]
  - Confusional state [Recovered/Resolved]
  - Blood pressure decreased [Unknown]
  - Blood creatine phosphokinase increased [Recovering/Resolving]
  - Hypoglycaemia [Recovered/Resolved]
  - Miosis [Unknown]
  - Vomiting [Recovered/Resolved]

NARRATIVE: CASE EVENT DATE: 201607
